FAERS Safety Report 14829286 (Version 1)
Quarter: 2018Q2

REPORT INFORMATION
  Report Type: Spontaneous
  Country: US (occurrence: US)
  Receive Date: 20180418
  Receipt Date: 20180418
  Transmission Date: 20180711
  Serious: Yes (Disabling)
  Sender: FDA-Public Use
  Company Number: None

PATIENT
  Age: 36 Year
  Sex: Male
  Weight: 76.5 kg

DRUGS (6)
  1. MULTIVITAMIN [Concomitant]
     Active Substance: VITAMINS
  2. CYMBALTA [Suspect]
     Active Substance: DULOXETINE HYDROCHLORIDE
     Indication: BIPOLAR DISORDER
     Dosage: ?          QUANTITY:2 CAPSULE(S);?
     Route: 048
  3. TRILEPTAL [Concomitant]
     Active Substance: OXCARBAZEPINE
  4. ABILIFY [Concomitant]
     Active Substance: ARIPIPRAZOLE
  5. SUBOXONE [Concomitant]
     Active Substance: BUPRENORPHINE HYDROCHLORIDE\NALOXONE HYDROCHLORIDE
  6. OMEPRAZOL [Concomitant]
     Active Substance: OMEPRAZOLE

REACTIONS (6)
  - Nausea [None]
  - Drug dose omission [None]
  - Withdrawal syndrome [None]
  - Dizziness [None]
  - Irritability [None]
  - Blood pressure increased [None]

NARRATIVE: CASE EVENT DATE: 20180417
